FAERS Safety Report 5847853-8 (Version None)
Quarter: 2008Q3

REPORT INFORMATION
  Report Type: 
  Country: None (occurrence: None)
  Receive Date: 20080818
  Receipt Date: 20080731
  Transmission Date: 20090109
  Serious: Yes (Death, Other)
  Sender: FDA-Public Use
  Company Number: IT-BAYER-200823701GPV

PATIENT

DRUGS (4)
  1. FLUDARABINE [Suspect]
     Indication: B-CELL SMALL LYMPHOCYTIC LYMPHOMA
     Route: 042
  2. RITUXIMAB [Suspect]
     Indication: B-CELL SMALL LYMPHOCYTIC LYMPHOMA
     Route: 065
  3. RITUXIMAB [Suspect]
     Route: 065
  4. RITUXIMAB [Suspect]
     Route: 065

REACTIONS (3)
  - HEPATITIS B [None]
  - LUNG INFECTION [None]
  - NEUTROPENIA [None]
